FAERS Safety Report 8564741-7 (Version None)
Quarter: 2012Q3

REPORT INFORMATION
  Report Type: 
  Country: None (occurrence: None)
  Receive Date: 20120803
  Receipt Date: 20120731
  Transmission Date: 20120928
  Serious: Yes (Hospitalization)
  Sender: FDA-Public Use
  Company Number: BR-SANOFI-AVENTIS-2012SA036097

PATIENT
  Age: 43 Year
  Sex: Female

DRUGS (3)
  1. FLUOROURACIL [Concomitant]
     Dosage: 12 CYCLES
     Dates: end: 20120425
  2. LEUCOVORIN CALCIUM [Concomitant]
     Dosage: 12 CYCLES
     Dates: end: 20120425
  3. ELOXATIN [Suspect]
     Dosage: 12 CYCLES
     Route: 065
     Dates: end: 20120425

REACTIONS (3)
  - ORGANISING PNEUMONIA [None]
  - RESPIRATORY DISORDER [None]
  - INFLUENZA [None]
